FAERS Safety Report 6578892-X (Version None)
Quarter: 2010Q1

REPORT INFORMATION
  Report Type: 
  Country: None (occurrence: None)
  Receive Date: 20100212
  Receipt Date: 20100204
  Transmission Date: 20100710
  Serious: Yes (Hospitalization)
  Sender: FDA-Public Use
  Company Number: US-BIOGENIDEC-2010BI003820

PATIENT
  Age: 33 Year
  Sex: Female

DRUGS (1)
  1. TYSABRI [Suspect]
     Indication: MULTIPLE SCLEROSIS
     Route: 042
     Dates: start: 20090223

REACTIONS (6)
  - CLOSTRIDIAL INFECTION [None]
  - DIARRHOEA [None]
  - KIDNEY INFECTION [None]
  - RESIDUAL URINE [None]
  - VOMITING [None]
  - WEIGHT DECREASED [None]
